FAERS Safety Report 10193585 (Version 4)
Quarter: 2018Q1

REPORT INFORMATION
  Report Type: Spontaneous
  Country: US (occurrence: US)
  Receive Date: 20140524
  Receipt Date: 20180214
  Transmission Date: 20180508
  Serious: Yes (Other)
  Sender: FDA-Public Use
  Company Number: US-SA-2013SA125690

PATIENT
  Age: 75 Year
  Sex: Female

DRUGS (8)
  1. LANTUS SOLOSTAR [Suspect]
     Active Substance: INSULIN GLARGINE
     Indication: TYPE 2 DIABETES MELLITUS
     Dosage: DOSE:28 UNIT(S)
     Route: 051
  2. SOLOSTAR [Suspect]
     Active Substance: DEVICE
     Indication: TYPE 2 DIABETES MELLITUS
     Dates: start: 2011
  3. JARDIANCE [Concomitant]
     Active Substance: EMPAGLIFLOZIN
     Route: 065
  4. SOLOSTAR [Suspect]
     Active Substance: DEVICE
     Indication: TYPE 2 DIABETES MELLITUS
  5. SOLOSTAR [Suspect]
     Active Substance: DEVICE
     Indication: TYPE 2 DIABETES MELLITUS
  6. LANTUS SOLOSTAR [Suspect]
     Active Substance: INSULIN GLARGINE
     Indication: TYPE 2 DIABETES MELLITUS
     Dosage: PATIENT TAKES 14 UNITS AT MORNING AND 6 UNITS AT EVENINIG, OVER 5 YEARS
     Route: 051
     Dates: start: 2011
  7. LANTUS SOLOSTAR [Suspect]
     Active Substance: INSULIN GLARGINE
     Indication: TYPE 2 DIABETES MELLITUS
     Dosage: 14 U AM AND 4 U PM
     Route: 051
  8. LANTUS SOLOSTAR [Suspect]
     Active Substance: INSULIN GLARGINE
     Indication: TYPE 2 DIABETES MELLITUS
     Dosage: PATIENT TAKES 14 UNITS AT MORNING AND 6 UNITS AT EVENINIG, OVER 5 YEARS
     Route: 051
     Dates: start: 2011

REACTIONS (3)
  - Brain tumour operation [Unknown]
  - Visual impairment [Unknown]
  - Product use issue [Unknown]
